FAERS Safety Report 22147637 (Version 1)
Quarter: 2023Q1

REPORT INFORMATION
  Report Type: Spontaneous
  Country: US (occurrence: None)
  Receive Date: 20230328
  Receipt Date: 20230328
  Transmission Date: 20230418
  Serious: Yes (Other)
  Sender: FDA-Public Use
  Company Number: None

PATIENT
  Sex: Female
  Weight: 74.7 kg

DRUGS (2)
  1. CHOLESTYRAMINE [Suspect]
     Active Substance: CHOLESTYRAMINE
  2. METOPROLOL [Concomitant]
     Active Substance: METOPROLOL

REACTIONS (6)
  - Product solubility abnormal [None]
  - Throat irritation [None]
  - Oropharyngeal pain [None]
  - Dysphonia [None]
  - Product substitution issue [None]
  - Product coating issue [None]
